FAERS Safety Report 5941152-1 (Version None)
Quarter: 2008Q4

REPORT INFORMATION
  Report Type: 
  Country: None (occurrence: None)
  Receive Date: 20081104
  Receipt Date: 20081024
  Transmission Date: 20090506
  Serious: Yes (Other)
  Sender: FDA-Public Use
  Company Number: JP-PFIZER INC-2008089697

PATIENT
  Sex: Male

DRUGS (3)
  1. NORVASC [Suspect]
     Indication: BLOOD PRESSURE INCREASED
     Dosage: FREQ:AS NEEDED
     Route: 048
  2. CASODEX [Suspect]
     Route: 048
  3. BLOPRESS [Concomitant]
     Indication: BLOOD PRESSURE INCREASED
     Route: 048

REACTIONS (3)
  - FALL [None]
  - FEELING ABNORMAL [None]
  - PROSTATECTOMY [None]
